FAERS Safety Report 6162286-5 (Version None)
Quarter: 2009Q2

REPORT INFORMATION
  Report Type: 
  Country: None (occurrence: None)
  Receive Date: 20090421
  Receipt Date: 20090330
  Transmission Date: 20091009
  Serious: Yes (Death)
  Sender: FDA-Public Use
  Company Number: TR-ELI_LILLY_AND_COMPANY-TR200904004355

PATIENT
  Age: 60 Year
  Sex: Female

DRUGS (3)
  1. HUMULIN R [Suspect]
     Indication: DIABETES MELLITUS
     Dosage: UNK UNK, UNKNOWN
     Route: 058
     Dates: start: 20070101
  2. MIRTARON [Concomitant]
     Dosage: 30 MG, DAILY (1/D)
     Route: 065
  3. PANKREOFLAT [Concomitant]
     Indication: PANCREATIC CARCINOMA
     Dosage: UNK 6 TIMES DAILY
     Route: 065

REACTIONS (1)
  - PANCREATIC CARCINOMA [None]
